FAERS Safety Report 4955502-6 (Version None)
Quarter: 2006Q1

REPORT INFORMATION
  Report Type: 
  Country: None (occurrence: None)
  Receive Date: 20060328
  Receipt Date: 20040901
  Transmission Date: 20060701
  Serious: Yes (Hospitalization, Other)
  Sender: FDA-Public Use
  Company Number: DE-BRISTOL-MYERS SQUIBB COMPANY-13322532

PATIENT
  Sex: Male
  Weight: 2 kg

DRUGS (5)
  1. SUSTIVA [Suspect]
     Indication: HIV INFECTION
     Route: 064
     Dates: start: 19990101, end: 20011001
  2. ZIDOVUDINE [Concomitant]
     Indication: HIV INFECTION
     Dosage: STARTED 1991-1992, 1996-1997, 1999-OCT-2001, OCT-2001-JUN-2002.
     Route: 064
     Dates: start: 19910101
  3. LAMIVUDINE [Concomitant]
     Indication: HIV INFECTION
     Dosage: STARTED 1996-1997, 1999-OCT-2001, OCT-2001-JUN-2002, AUG-2002
     Route: 064
  4. NEVIRAPINE [Concomitant]
     Indication: HIV INFECTION
     Route: 064
     Dates: start: 20011001, end: 20020601
  5. ACTRAPHANE [Concomitant]
     Indication: DIABETES MELLITUS
     Dosage: DOSAGE: 30/70 (HUMAN INSULIN) 14-0-12 U/DAY.
     Route: 064

REACTIONS (3)
  - DYSPNOEA [None]
  - GROUP B STREPTOCOCCUS NEONATAL SEPSIS [None]
  - ROTAVIRUS TEST POSITIVE [None]
